FAERS Safety Report 10663211 (Version 1)
Quarter: 2014Q4

REPORT INFORMATION
  Report Type: Spontaneous
  Country: US (occurrence: US)
  Receive Date: 20141218
  Receipt Date: 20141218
  Transmission Date: 20150529
  Serious: No
  Sender: FDA-Public Use
  Company Number: US-GALDERMA-US14003528

PATIENT
  Sex: Female
  Weight: 72 kg

DRUGS (3)
  1. METRONIDAZOLE (METRONIDAZOLE) [Concomitant]
     Active Substance: METRONIDAZOLE
     Indication: ROSACEA
     Dosage: 1%
     Route: 061
  2. MIRVASO [Suspect]
     Active Substance: BRIMONIDINE TARTRATE
     Indication: ROSACEA
     Dosage: 0.33%
     Route: 061
     Dates: start: 20140201, end: 20140916
  3. ORACEA [Concomitant]
     Active Substance: DOXYCYCLINE
     Indication: ROSACEA
     Dosage: 40MG
     Route: 048
     Dates: start: 201111

REACTIONS (2)
  - Therapeutic response unexpected [Recovered/Resolved]
  - Ocular vascular disorder [Recovered/Resolved]
